FAERS Safety Report 24242555 (Version 1)
Quarter: 2024Q3

REPORT INFORMATION
  Report Type: Spontaneous
  Country: GB (occurrence: GB)
  Receive Date: 20240823
  Receipt Date: 20240823
  Transmission Date: 20241016
  Serious: Yes (Other)
  Sender: BRISTOL MYERS SQUIBB
  Company Number: GB-BRISTOL-MYERS SQUIBB COMPANY-2024-118414

PATIENT

DRUGS (1)
  1. ZEPOSIA [Suspect]
     Active Substance: OZANIMOD HYDROCHLORIDE
     Indication: Multiple sclerosis

REACTIONS (3)
  - COVID-19 [Unknown]
  - Urinary tract infection [Unknown]
  - Central nervous system lesion [Unknown]
